FAERS Safety Report 13105466 (Version 2)
Quarter: 2017Q1

REPORT INFORMATION
  Report Type: Report from Study
  Country: US (occurrence: US)
  Receive Date: 20170111
  Receipt Date: 20170119
  Transmission Date: 20170428
  Serious: Yes (Hospitalization, Other)
  Sender: FDA-Public Use
  Company Number: US-MALLINCKRODT-T201606293

PATIENT
  Age: 68 Year
  Sex: Female

DRUGS (2)
  1. REPOSITORY CORTICOTROPIN INJECTION [Suspect]
     Active Substance: CORTICOTROPIN
     Indication: SARCOIDOSIS
     Dosage: 80 UNITS / 1 ML; TWICE WEEKLY (WEDNESDAY AND SUNDAY)
     Route: 058
     Dates: start: 20161228
  2. REPOSITORY CORTICOTROPIN INJECTION [Suspect]
     Active Substance: CORTICOTROPIN
     Dosage: 80 UNITS / 1 ML, 2 TIMES PER WEEK, WEDNESDAY AND SUNDAY
     Route: 058
     Dates: start: 20150715

REACTIONS (9)
  - Fall [Unknown]
  - Cough [Not Recovered/Not Resolved]
  - Pain [Unknown]
  - Hypotension [Not Recovered/Not Resolved]
  - Choking [Unknown]
  - Pulmonary fibrosis [Not Recovered/Not Resolved]
  - Laceration [Unknown]
  - Hypopnoea [Not Recovered/Not Resolved]
  - Heart rate increased [Not Recovered/Not Resolved]

NARRATIVE: CASE EVENT DATE: 2016
